FAERS Safety Report 5950616-6 (Version None)
Quarter: 2008Q4

REPORT INFORMATION
  Report Type: 
  Country: None (occurrence: None)
  Receive Date: 20081022
  Receipt Date: 20080807
  Transmission Date: 20090506
  Serious: No
  Sender: FDA-Public Use
  Company Number: ALL1-2008-01156

PATIENT
  Age: 11 Year
  Sex: Male
  Weight: 38.3 kg

DRUGS (2)
  1. VYVANSE [Suspect]
     Indication: ATTENTION DEFICIT/HYPERACTIVITY DISORDER
     Dosage: 50 MG, 1X/DAY:QD,ORAL; 30 MG,1X/DAY:QD,ORAL
     Route: 048
     Dates: start: 20080301, end: 20080501
  2. VYVANSE [Suspect]
     Indication: ATTENTION DEFICIT/HYPERACTIVITY DISORDER
     Dosage: 50 MG, 1X/DAY:QD,ORAL; 30 MG,1X/DAY:QD,ORAL
     Route: 048
     Dates: start: 20080501, end: 20080801

REACTIONS (2)
  - ANOREXIA [None]
  - WEIGHT DECREASED [None]
